FAERS Safety Report 24635154 (Version 1)
Quarter: 2024Q4

REPORT INFORMATION
  Report Type: Spontaneous
  Country: FR (occurrence: FR)
  Receive Date: 20241119
  Receipt Date: 20241119
  Transmission Date: 20250115
  Serious: Yes (Hospitalization)
  Sender: ORGANON
  Company Number: None

PATIENT
  Age: 28 Year
  Sex: Female
  Weight: 82 kg

DRUGS (7)
  1. ORGALUTRAN [Suspect]
     Active Substance: GANIRELIX ACETATE
     Indication: Controlled ovarian stimulation
     Dosage: UNK
     Dates: start: 202408
  2. DUPHASTON [Suspect]
     Active Substance: DYDROGESTERONE
     Indication: Controlled ovarian stimulation
     Dosage: 20 MILLIGRAM
     Route: 048
     Dates: start: 202402
  3. ESTRADIOL [Suspect]
     Active Substance: ESTRADIOL
     Indication: Controlled ovarian stimulation
     Dosage: 4 MILLIGRAM
     Route: 048
     Dates: start: 202408
  4. FOLLITROPIN ALFA [Suspect]
     Active Substance: FOLLITROPIN ALFA
     Indication: Controlled ovarian stimulation
     Dosage: MAMMAL/HAMSTER/CHO CELLS
     Dates: start: 202408
  5. CHORIOGONADOTROPIN ALFA [Suspect]
     Active Substance: CHORIOGONADOTROPIN ALFA
     Indication: Controlled ovarian stimulation
     Dosage: UNK
     Dates: start: 202408
  6. DECAPEPTYL (ACETATE) [Suspect]
     Active Substance: TRIPTORELIN ACETATE
     Indication: Controlled ovarian stimulation
     Dosage: POWDER AND SOLVENT FOR SOLUTION FOR INJECTION (S.C.)
     Dates: start: 202408
  7. ALPRAZOLAM [Concomitant]
     Active Substance: ALPRAZOLAM
     Dosage: UNK

REACTIONS (1)
  - Suicide attempt [Recovering/Resolving]

NARRATIVE: CASE EVENT DATE: 20241026
